FAERS Safety Report 10236896 (Version 1)
Quarter: 2014Q2

REPORT INFORMATION
  Report Type: Report from Study
  Country: US (occurrence: US)
  Receive Date: 20140613
  Receipt Date: 20140613
  Transmission Date: 20141212
  Serious: Yes (Other)
  Sender: FDA-Public Use
  Company Number: US-TAKEDA-2014MPI001623

PATIENT
  Age: 20 Year
  Sex: Male
  Weight: 61.7 kg

DRUGS (7)
  1. VELCADE [Suspect]
     Indication: ACUTE MYELOID LEUKAEMIA
     Dosage: 1.3 MG/M2, OVER 3-5 SECONDS ON DAYS 1, 4 AND 8
     Route: 042
     Dates: start: 20131214
  2. CYTARABINE [Suspect]
     Indication: ACUTE MYELOID LEUKAEMIA
     Dosage: 20-70 MG TWICE WEEKLY TO A MAXIMUM OF 6 DOSES OR 100 MG/M2/DOSE OR 3.3 MG/KG/DOSE TWICE DAILY
     Route: 042
  3. CYTARABINE [Suspect]
     Dosage: 20-70 MG ON DAY 1, 1000 MG/M2/DOSE OR 33 MG/KG/DOSE OVER 1-3 HOURS ON DAYS 1-5
     Route: 042
  4. CYTARABINE [Suspect]
     Dosage: 20-70 MG ON DAY 1, 1000 MG/M2/DOSE OR 33 MG/KG/DOSE OVER 1-3 HOURS ON DAYS 1-4
     Route: 042
  5. ETOPOSIDE [Suspect]
     Indication: ACUTE MYELOID LEUKAEMIA
     Dosage: 100 MG/M2/DOSE OR 3.3 MG/KG/DOSE OVER 60-120 MINUTES ON DAYS 1-5
     Route: 042
     Dates: start: 20131214
  6. ETOPOSIDE [Suspect]
     Dosage: 150 MG/M2/DOSE OR 5 MG/KG/DOSE OVER 60-120 MINUTES ON DAYS 1-5
     Route: 042
     Dates: start: 20131214
  7. MITOXANTRONE HYDROCHLORIDE [Suspect]
     Indication: ACUTE MYELOID LEUKAEMIA
     Dosage: 12 MG/M2/DOSE OR 0.4 MG/KG/DOSE OVER 15-30 MINUTES ON DAYS 3-6
     Route: 042

REACTIONS (1)
  - Colitis [Not Recovered/Not Resolved]
